FAERS Safety Report 10744180 (Version 2)
Quarter: 2015Q3

REPORT INFORMATION
  Report Type: Spontaneous
  Country: US (occurrence: US)
  Receive Date: 20150128
  Receipt Date: 20150701
  Transmission Date: 20151125
  Serious: Yes (Hospitalization)
  Sender: FDA-Public Use
  Company Number: US-BAYER-2015-012612

PATIENT
  Age: 35 Year
  Sex: Female
  Weight: 63.49 kg

DRUGS (10)
  1. MIRENA [Suspect]
     Active Substance: LEVONORGESTREL
     Indication: CONTRACEPTION
     Dosage: 20 MCG/24HR, CONT
     Route: 015
     Dates: start: 200105, end: 200509
  2. ADDERALL [Concomitant]
     Active Substance: AMPHETAMINE ASPARTATE\AMPHETAMINE SULFATE\DEXTROAMPHETAMINE SACCHARATE\DEXTROAMPHETAMINE SULFATE
     Indication: ATTENTION DEFICIT/HYPERACTIVITY DISORDER
     Dosage: 60 MG, 30 MG IN AM, 30 MG AT NOON
     Route: 048
     Dates: start: 2000
  3. BACTRIM [AMMONIUM CHLORIDE,GUAIFENESIN,SULFAMETHOXAZOLE,TRIMETHOPR [Concomitant]
     Indication: URINARY TRACT INFECTION
     Dosage: UNK UNK, BID
  4. DOXYCYCLINE AL [Concomitant]
     Dosage: UNK UNK, BID
  5. KLONOPIN [Concomitant]
     Active Substance: CLONAZEPAM
     Indication: INSOMNIA
     Dosage: 1 MG, 1-3 MGG AS NEEDED
     Route: 048
     Dates: start: 1996
  6. NORTRIPTYLINE [Concomitant]
     Active Substance: NORTRIPTYLINE
     Indication: INSOMNIA
     Dosage: UNK
     Dates: start: 1996
  7. MIRENA [Suspect]
     Active Substance: LEVONORGESTREL
     Indication: CONTRACEPTION
     Dosage: 20 MCG/24HR, CONT
     Route: 015
     Dates: start: 20061211, end: 20100210
  8. AMBIEN [Concomitant]
     Active Substance: ZOLPIDEM TARTRATE
     Indication: INSOMNIA
     Dosage: 10 MG, AT BEDTIME AS NEEDED
     Route: 048
     Dates: start: 1969, end: 2011
  9. LEXAPRO [Concomitant]
     Active Substance: ESCITALOPRAM OXALATE
     Indication: DEPRESSION
     Dosage: 30 MG,10 MG IN AM , 20 MG AT PM
     Route: 048
     Dates: start: 2009
  10. KLONOPIN [Concomitant]
     Active Substance: CLONAZEPAM
     Indication: ANXIETY

REACTIONS (13)
  - Menorrhagia [None]
  - Anxiety [None]
  - Depression [None]
  - Sexual dysfunction [None]
  - Device issue [None]
  - Emotional distress [None]
  - Abdominal pain lower [None]
  - Device failure [None]
  - Pain [Not Recovered/Not Resolved]
  - Fear [None]
  - Injury [Not Recovered/Not Resolved]
  - Uterine perforation [Not Recovered/Not Resolved]
  - Back pain [None]

NARRATIVE: CASE EVENT DATE: 200612
